FAERS Safety Report 6848334-5 (Version None)
Quarter: 2010Q3

REPORT INFORMATION
  Report Type: 
  Country: None (occurrence: None)
  Receive Date: 20100716
  Receipt Date: 20100706
  Transmission Date: 20110219
  Serious: Yes (Hospitalization)
  Sender: FDA-Public Use
  Company Number: US-PFIZER INC-2010084154

PATIENT
  Sex: Male

DRUGS (7)
  1. DETROL [Suspect]
     Indication: HYPERTONIC BLADDER
     Dosage: 4 MG, 1X/DAY
     Route: 048
     Dates: start: 20081030, end: 20090514
  2. ASPIRIN [Concomitant]
     Dosage: UNK
     Dates: start: 20080101
  3. LIPITOR [Concomitant]
     Dosage: UNK
     Dates: start: 19900101
  4. LISINOPRIL [Concomitant]
     Dosage: UNK
     Dates: start: 20030101
  5. NEXIUM [Concomitant]
     Dosage: UNK
     Dates: start: 20060101
  6. ACEBUTOLOL HYDROCHLORIDE [Concomitant]
     Dosage: UNK
     Dates: start: 20030101
  7. GABAPENTIN [Concomitant]
     Dosage: UNK
     Dates: start: 20060101

REACTIONS (2)
  - ANGINA PECTORIS [None]
  - ATRIAL FIBRILLATION [None]
